FAERS Safety Report 7825703-8 (Version None)
Quarter: 2011Q4

REPORT INFORMATION
  Report Type: 
  Country: None (occurrence: None)
  Receive Date: 20111019
  Receipt Date: 20110707
  Transmission Date: 20120403
  Serious: Yes (Other)
  Sender: FDA-Public Use
  Company Number: CA-GLAXOSMITHKLINE-A0935225A

PATIENT
  Sex: Male
  Weight: 111.4 kg

DRUGS (9)
  1. PREDNISONE [Suspect]
     Indication: PRODUCT USED FOR UNKNOWN INDICATION
     Route: 048
  2. SPIRIVA [Concomitant]
  3. CHOLESTEROL REDUCING AGENT [Concomitant]
     Indication: BLOOD CHOLESTEROL INCREASED
  4. BLOOD PRESSURE MEDICATION [Concomitant]
     Indication: HYPERTENSION
  5. SPIRIVA [Concomitant]
  6. ADVAIR DISKUS 100/50 [Suspect]
     Indication: CHRONIC OBSTRUCTIVE PULMONARY DISEASE
     Dosage: 2PUFF TWICE PER DAY
     Route: 055
     Dates: start: 20060101
  7. VENTOLIN [Concomitant]
  8. BLOOD THINNER [Concomitant]
  9. VENTOLIN [Concomitant]

REACTIONS (11)
  - CHEST DISCOMFORT [None]
  - MUCOSAL DISCOLOURATION [None]
  - ILL-DEFINED DISORDER [None]
  - LOWER RESPIRATORY TRACT INFECTION [None]
  - DYSPNOEA [None]
  - SKIN ATROPHY [None]
  - LUNG INFECTION [None]
  - SPUTUM DISCOLOURED [None]
  - SKIN EXFOLIATION [None]
  - POOR QUALITY SLEEP [None]
  - APPETITE DISORDER [None]
